FAERS Safety Report 7302614-8 (Version None)
Quarter: 2011Q1

REPORT INFORMATION
  Report Type: 
  Country: None (occurrence: None)
  Receive Date: 20110218
  Receipt Date: 20110214
  Transmission Date: 20110831
  Serious: Yes (Death)
  Sender: FDA-Public Use
  Company Number: DK-ABBOTT-09P-044-0600263-00

PATIENT
  Sex: Male
  Weight: 100 kg

DRUGS (5)
  1. ALEFACEPT [Concomitant]
     Indication: PRODUCT USED FOR UNKNOWN INDICATION
  2. ETANERCEPT [Concomitant]
     Indication: PSORIASIS
     Route: 058
     Dates: start: 20081021, end: 20090113
  3. METHOTREXATE [Concomitant]
     Indication: PRODUCT USED FOR UNKNOWN INDICATION
  4. HUMIRA [Suspect]
     Indication: PSORIASIS
     Dates: start: 20090121
  5. CYCLOSPORINE [Concomitant]
     Indication: PRODUCT USED FOR UNKNOWN INDICATION

REACTIONS (7)
  - HEPATIC NEOPLASM MALIGNANT [None]
  - DISCOMFORT [None]
  - ABDOMINAL PAIN UPPER [None]
  - LUNG INFECTION [None]
  - SPINAL CORD COMPRESSION [None]
  - WAIST CIRCUMFERENCE INCREASED [None]
  - NEOPLASM MALIGNANT [None]
